FAERS Safety Report 23600418 (Version 1)
Quarter: 2024Q1

REPORT INFORMATION
  Report Type: Spontaneous
  Country: US (occurrence: US)
  Receive Date: 20240306
  Receipt Date: 20240306
  Transmission Date: 20240409
  Serious: No
  Sender: FDA-Public Use
  Company Number: US-BRISTOL-MYERS SQUIBB COMPANY-2024-036049

PATIENT
  Age: 88 Year
  Sex: Female
  Weight: 47.63 kg

DRUGS (1)
  1. REVLIMID [Suspect]
     Active Substance: LENALIDOMIDE
     Indication: Hyperparathyroidism secondary
     Dosage: 1 CAPSULE DAILY FOR 7 DAYS, THEN 7 DAYS OFF.
     Route: 048

REACTIONS (2)
  - Peripheral swelling [Unknown]
  - Off label use [Unknown]
